FAERS Safety Report 11834837 (Version 3)
Quarter: 2018Q4

REPORT INFORMATION
  Report Type: Spontaneous
  Country: US (occurrence: US)
  Receive Date: 20151215
  Receipt Date: 20181213
  Transmission Date: 20190204
  Serious: Yes (Hospitalization)
  Sender: FDA-Public Use
  Company Number: US-JNJFOC-20151104477

PATIENT
  Age: 72 Year
  Sex: Male

DRUGS (11)
  1. ASPIRIN. [Suspect]
     Active Substance: ASPIRIN
     Indication: THROMBOEMBOLECTOMY
     Route: 048
     Dates: start: 20150220, end: 20150304
  2. ASPIRIN. [Suspect]
     Active Substance: ASPIRIN
     Indication: THROMBECTOMY
     Route: 048
     Dates: start: 20150220, end: 20150304
  3. PLAVIX [Suspect]
     Active Substance: CLOPIDOGREL BISULFATE
     Indication: THROMBOEMBOLECTOMY
     Route: 048
     Dates: start: 20150220, end: 20150304
  4. XARELTO [Suspect]
     Active Substance: RIVAROXABAN
     Indication: THROMBOEMBOLECTOMY
     Dosage: IN VARYING DOSES OF 15 MG AND 20 MG
     Route: 048
     Dates: start: 20150220, end: 20150304
  5. PLAVIX [Suspect]
     Active Substance: CLOPIDOGREL BISULFATE
     Indication: THROMBOSIS
     Route: 048
     Dates: start: 20150220, end: 20150304
  6. ASPIRIN. [Suspect]
     Active Substance: ASPIRIN
     Indication: THROMBOSIS
     Route: 048
     Dates: start: 20150220, end: 20150304
  7. XARELTO [Suspect]
     Active Substance: RIVAROXABAN
     Indication: THROMBECTOMY
     Dosage: IN VARYING DOSES OF 15 MG AND 20 MG
     Route: 048
     Dates: start: 20150220, end: 20150304
  8. XARELTO [Suspect]
     Active Substance: RIVAROXABAN
     Indication: PERIPHERAL VASCULAR DISORDER
     Dosage: IN VARYING DOSES OF 15 MG AND 20 MG
     Route: 048
     Dates: start: 20150220, end: 20150304
  9. XARELTO [Suspect]
     Active Substance: RIVAROXABAN
     Indication: THROMBOSIS
     Dosage: IN VARYING DOSES OF 15 MG AND 20 MG
     Route: 048
     Dates: start: 20150220, end: 20150304
  10. PLAVIX [Suspect]
     Active Substance: CLOPIDOGREL BISULFATE
     Indication: THROMBECTOMY
     Route: 048
     Dates: start: 20150220, end: 20150304
  11. DELTASON [Suspect]
     Active Substance: PREDNISONE
     Indication: PEMPHIGOID
     Route: 048

REACTIONS (1)
  - Upper gastrointestinal haemorrhage [Recovered/Resolved]

NARRATIVE: CASE EVENT DATE: 20150303
